FAERS Safety Report 9153064 (Version 1)
Quarter: 2013Q1

REPORT INFORMATION
  Report Type: Spontaneous
  Country: US (occurrence: None)
  Receive Date: 20130301
  Receipt Date: 20130301
  Transmission Date: 20140127
  Serious: No
  Sender: FDA-Public Use
  Company Number: None

PATIENT
  Age: 18 Year
  Sex: Female
  Weight: 73.9 kg

DRUGS (2)
  1. NEXPLANON [Suspect]
     Indication: CONTRACEPTION
     Dosage: 1 DEVICE ONCE ID
     Route: 023
     Dates: start: 20130131, end: 20130228
  2. HYDROCORTISONE CREAM [Concomitant]

REACTIONS (3)
  - Device allergy [None]
  - Implant site rash [None]
  - Implant site pruritus [None]
